FAERS Safety Report 4673832-2 (Version None)
Quarter: 2005Q2

REPORT INFORMATION
  Report Type: 
  Country: None (occurrence: None)
  Receive Date: 20050524
  Receipt Date: 20050511
  Transmission Date: 20051028
  Serious: Yes (Hospitalization)
  Sender: FDA-Public Use
  Company Number: DE_050515921

PATIENT
  Age: 78 Year
  Sex: Female

DRUGS (4)
  1. GEMZAR [Suspect]
     Indication: PANCREATIC CARCINOMA
     Dosage: 1000 MG/M2 ONCE PER WEEK FOR SEVEN WEEKS
     Dates: start: 20050310, end: 20050429
  2. METAMIZOL (METAMIZOLE MAGNESIUM) [Concomitant]
  3. TRIAMTERENE AND HYDROCHLOROTHIAZIDE [Concomitant]
  4. BENALAPRIL (ENALAPRIL MALEATE) [Concomitant]

REACTIONS (4)
  - C-REACTIVE PROTEIN INCREASED [None]
  - LEUKOCYTOSIS [None]
  - PNEUMONITIS [None]
  - THROMBOCYTHAEMIA [None]
